FAERS Safety Report 10058467 (Version 2)
Quarter: 2014Q2

REPORT INFORMATION
  Report Type: Spontaneous
  Country: BR (occurrence: BR)
  Receive Date: 20140404
  Receipt Date: 20140407
  Transmission Date: 20141212
  Serious: Yes (Other)
  Sender: FDA-Public Use
  Company Number: BR-PFIZER INC-2014094252

PATIENT
  Age: 60 Year
  Sex: Female
  Weight: 70 kg

DRUGS (7)
  1. ATENOLOL [Suspect]
     Indication: HYPERTENSION
     Dosage: 25 MG, DAILY
     Route: 048
     Dates: start: 2012, end: 201402
  2. ATENOLOL [Suspect]
     Dosage: 25 MG, 2X/DAY
     Route: 048
     Dates: start: 201402
  3. MELOXICAM [Suspect]
     Indication: ARTHRALGIA
     Dosage: UNK
     Route: 048
     Dates: start: 201401
  4. ATACAND [Suspect]
     Indication: HYPERTENSION
     Dosage: 16 MG, DAILY
     Route: 048
     Dates: start: 2012, end: 20140319
  5. ATACAND HCT [Suspect]
     Indication: HYPERTENSION
     Dosage: 16/12.5 MG, DAILY
     Dates: start: 20140320
  6. CHLORTHALIDONE [Concomitant]
     Indication: HYPERTENSION
     Dosage: DAILY
     Route: 048
     Dates: start: 2012
  7. ARCOXIA [Concomitant]
     Indication: ANTIINFLAMMATORY THERAPY
     Dosage: UNK
     Route: 048
     Dates: start: 201402

REACTIONS (4)
  - Blood pressure increased [Recovering/Resolving]
  - Drug ineffective [Unknown]
  - Off label use [Not Recovered/Not Resolved]
  - Nausea [Not Recovered/Not Resolved]
